FAERS Safety Report 7350488-1 (Version None)
Quarter: 2011Q1

REPORT INFORMATION
  Report Type: 
  Country: None (occurrence: None)
  Receive Date: 20110314
  Receipt Date: 20110304
  Transmission Date: 20110831
  Serious: Yes (Hospitalization, Other)
  Sender: FDA-Public Use
  Company Number: JP-ABBOTT-10P-087-0673811-00

PATIENT
  Sex: Female
  Weight: 64 kg

DRUGS (13)
  1. PREDONINE [Concomitant]
  2. STROCAIN [Concomitant]
     Indication: GASTRITIS
     Route: 048
     Dates: start: 20100409
  3. PENTASA [Concomitant]
     Indication: COLITIS ULCERATIVE
     Route: 048
     Dates: start: 20100327, end: 20101023
  4. TAKEPRON [Concomitant]
     Indication: REFLUX OESOPHAGITIS
     Route: 048
     Dates: start: 20091009
  5. BIOFERMIN [Concomitant]
     Indication: COLITIS ULCERATIVE
     Route: 048
     Dates: start: 20100523
  6. HUMIRA [Suspect]
     Dosage: RESCUE (BLIND/ACTIVE DRUG)
     Route: 058
     Dates: start: 20100706, end: 20100720
  7. HUMIRA [Suspect]
     Dosage: OPEN LABEL
     Route: 058
     Dates: start: 20100911, end: 20100911
  8. HUMIRA [Suspect]
     Dosage: OPEN LABEL
     Route: 058
     Dates: start: 20100803, end: 20100828
  9. HUMIRA [Suspect]
     Indication: COLITIS ULCERATIVE
     Dosage: BLINDED
     Route: 058
     Dates: start: 20100427, end: 20100622
  10. GASCON [Concomitant]
     Indication: COLITIS ULCERATIVE
     Route: 048
     Dates: start: 20100618
  11. PREDONINE [Concomitant]
     Indication: COLITIS ULCERATIVE
     Route: 048
     Dates: start: 20091212
  12. MUCOSTA [Concomitant]
     Indication: PROPHYLAXIS AGAINST GASTROINTESTINAL ULCER
     Route: 048
     Dates: start: 20091009
  13. IDOMETHINE [Concomitant]
     Indication: OSTEOARTHRITIS
     Route: 062
     Dates: start: 20091009

REACTIONS (1)
  - CERVIX CARCINOMA [None]
